FAERS Safety Report 21213319 (Version 2)
Quarter: 2022Q3

REPORT INFORMATION
  Report Type: Spontaneous
  Country: JP (occurrence: JP)
  Receive Date: 20220815
  Receipt Date: 20220817
  Transmission Date: 20221027
  Serious: No
  Sender: FDA-Public Use
  Company Number: JP-MSD-2208JPN001166J

PATIENT
  Age: 69 Year
  Sex: Female

DRUGS (11)
  1. LAGEVRIO [Suspect]
     Active Substance: MOLNUPIRAVIR
     Indication: COVID-19 treatment
     Dosage: 800 MILLIGRAM, BID
     Route: 048
     Dates: start: 20220802, end: 20220804
  2. PRANLUKAST [Concomitant]
     Active Substance: PRANLUKAST
     Dosage: 112.5 MILLIGRAM
     Route: 048
     Dates: start: 20210501
  3. ALLEGRA [Concomitant]
     Active Substance: FEXOFENADINE HYDROCHLORIDE
     Dosage: 60 MILLIGRAM
     Route: 048
     Dates: start: 20210501
  4. CARBOCYSTEINE [Concomitant]
     Active Substance: CARBOCYSTEINE
     Dosage: 500 MILLIGRAM
     Route: 048
     Dates: start: 20210501
  5. SYMBICORT [Concomitant]
     Active Substance: BUDESONIDE\FORMOTEROL FUMARATE DIHYDRATE
     Dosage: UNK
     Dates: start: 20210501
  6. TRANEXAMIC ACID [Concomitant]
     Active Substance: TRANEXAMIC ACID
     Dosage: 250 MILLIGRAM
     Route: 048
     Dates: start: 20220802
  7. AMBROXOL HYDROCHLORIDE [Concomitant]
     Active Substance: AMBROXOL HYDROCHLORIDE
     Dosage: 15 MILLIGRAM
     Route: 048
     Dates: start: 20220802
  8. CLOPERASTINE HYDROCHLORIDE [Concomitant]
     Active Substance: CLOPERASTINE HYDROCHLORIDE
     Dosage: 10 MILLIGRAM
     Route: 048
     Dates: start: 20220802
  9. CALONAL [Concomitant]
     Active Substance: ACETAMINOPHEN
     Dosage: 200 MILLIGRAM
     Route: 048
     Dates: start: 20220802
  10. SODIUM GUALENATE [Concomitant]
     Active Substance: SODIUM GUALENATE
     Dosage: UNK
     Route: 048
     Dates: start: 20220802
  11. SP [DEQUALINIUM CHLORIDE] [Concomitant]
     Dosage: 0.25 MILLIGRAM
     Route: 048

REACTIONS (1)
  - Urticaria [Recovered/Resolved]

NARRATIVE: CASE EVENT DATE: 20220804
